FAERS Safety Report 9155601 (Version 1)
Quarter: 2013Q1

REPORT INFORMATION
  Report Type: Spontaneous
  Country: US (occurrence: US)
  Receive Date: 20130311
  Receipt Date: 20130311
  Transmission Date: 20140127
  Serious: No
  Sender: FDA-Public Use
  Company Number: US-ASTRAZENECA-2013SE12905

PATIENT
  Age: 89 Year
  Sex: Female
  Weight: 62.6 kg

DRUGS (7)
  1. PULMICORT FLEXHALER [Suspect]
     Indication: ASTHMA
     Dosage: 180 MCG 2 PUFFS BID
     Route: 055
     Dates: start: 20130204
  2. LIPITOR [Concomitant]
     Indication: BLOOD CHOLESTEROL ABNORMAL
     Route: 048
     Dates: start: 1993
  3. THRYROID REPLACEMENT [Concomitant]
     Indication: THYROID DISORDER
     Route: 048
     Dates: start: 1993
  4. VITAMINS [Concomitant]
     Indication: VITAMIN SUPPLEMENTATION
     Dosage: UNKNOWN
  5. CALCIUM [Concomitant]
     Indication: ARTHRITIS
     Dosage: 1 TABS QAM
     Route: 048
     Dates: start: 2003
  6. CALCIUM [Concomitant]
     Indication: ARTHRITIS
     Dosage: 2 TABS
     Route: 048
     Dates: start: 2003
  7. GABAPENTIN [Concomitant]
     Indication: NEUROPATHY PERIPHERAL
     Route: 048
     Dates: start: 2010

REACTIONS (5)
  - Hypoaesthesia [Unknown]
  - Dyspnoea [Unknown]
  - Paraesthesia [Unknown]
  - Neuropathy peripheral [Unknown]
  - Intentional drug misuse [Unknown]
